FAERS Safety Report 9342326 (Version 3)
Quarter: 2013Q4

REPORT INFORMATION
  Report Type: Spontaneous
  Country: JP (occurrence: JP)
  Receive Date: 20130611
  Receipt Date: 20131125
  Transmission Date: 20140711
  Serious: Yes (Death, Other)
  Sender: FDA-Public Use
  Company Number: JP-OTSUKA-JP-2013-12155

PATIENT
  Age: 87 Year
  Sex: Female

DRUGS (10)
  1. SAMSCA [Suspect]
     Indication: CARDIAC FAILURE CONGESTIVE
     Dosage: 7.5 MG MILLIGRAM(S), DAILY DOSE
     Route: 048
     Dates: start: 20130517, end: 20130520
  2. SAMSCA [Suspect]
     Dosage: 15 MG MILLIGRAM(S), DAILY DOSE
     Route: 048
     Dates: start: 20130521, end: 20130530
  3. DIART [Suspect]
     Dosage: 30 MG MILLIGRAM(S), DAILY DOSE
     Route: 048
     Dates: end: 20130530
  4. DONEPEZIL HYDROCHLORIDE [Concomitant]
     Dosage: 5 MG MILLIGRAM(S), DAILY DOSE
     Route: 048
     Dates: end: 20130530
  5. NEXIUM [Concomitant]
     Dosage: 20 MG MILLIGRAM(S), DAILY DOSE
     Route: 048
     Dates: end: 20130530
  6. CO DIO COMBINATION [Concomitant]
     Dosage: UNK
     Route: 048
     Dates: start: 20130220, end: 20130530
  7. FERROMIA [Concomitant]
     Dosage: 100 MG MILLIGRAM(S), DAILY DOSE
     Route: 048
     Dates: start: 20130506, end: 20130530
  8. PRAVASTATIN SODIUM [Concomitant]
     Dosage: 10 MG MILLIGRAM(S), DAILY DOSE
     Route: 048
     Dates: start: 20130511, end: 20130530
  9. KN 1A [Concomitant]
     Dosage: 500 ML MILLILITRE(S), TID
     Route: 041
     Dates: start: 20130530, end: 20130530
  10. FUROSEMIDE [Concomitant]
     Route: 065

REACTIONS (4)
  - Intestinal ischaemia [Fatal]
  - Hypertension [Unknown]
  - Blood creatinine increased [Unknown]
  - Blood urea increased [Unknown]
